FAERS Safety Report 8065260-7 (Version None)
Quarter: 2012Q1

REPORT INFORMATION
  Report Type: 
  Country: None (occurrence: None)
  Receive Date: 20120124
  Receipt Date: 20120112
  Transmission Date: 20120608
  Serious: Yes (Other)
  Sender: FDA-Public Use
  Company Number: JP-CELGENEUS-087-50794-11113765

PATIENT
  Age: 68 Year
  Sex: Male
  Weight: 68 kg

DRUGS (20)
  1. SOLDEM 3A [Concomitant]
     Route: 065
     Dates: start: 20111114, end: 20111118
  2. SOLU-CORTEF [Concomitant]
     Route: 065
     Dates: start: 20111117
  3. LASIX [Concomitant]
     Route: 065
     Dates: start: 20111121, end: 20111121
  4. PREDNISOLONE [Concomitant]
     Route: 065
     Dates: start: 20111127, end: 20111203
  5. MUCOSTA [Concomitant]
     Dates: start: 20110101
  6. ALLOPURINOL [Concomitant]
     Route: 065
     Dates: start: 20110101
  7. KYTRIL [Concomitant]
     Route: 065
     Dates: start: 20111116, end: 20111118
  8. LASIX [Concomitant]
     Route: 065
     Dates: start: 20111119, end: 20111119
  9. PREDNISOLONE [Concomitant]
     Route: 065
     Dates: start: 20111124, end: 20111126
  10. VIDAZA [Suspect]
     Route: 041
     Dates: start: 20111115, end: 20111118
  11. TRAMADOL HYDROCHLORIDE [Concomitant]
     Route: 065
     Dates: start: 20110101, end: 20111119
  12. PRIMPERAN TAB [Concomitant]
     Route: 065
     Dates: start: 20111118, end: 20111118
  13. PREDNISOLONE [Concomitant]
     Route: 065
     Dates: start: 20111121, end: 20111123
  14. LOXONIN [Concomitant]
     Route: 065
     Dates: start: 20110101, end: 20111119
  15. RABEPRAZOLE SODIUM [Concomitant]
     Route: 065
     Dates: start: 20110101
  16. SOLDEM 6 [Concomitant]
     Route: 065
     Dates: start: 20111119, end: 20111129
  17. SODIUM BICARBONATE [Concomitant]
     Route: 065
     Dates: start: 20111114, end: 20111124
  18. CEFEPIME DIHYDROCHLORIDE HYDRATE [Concomitant]
     Route: 065
     Dates: start: 20111117, end: 20111118
  19. LASIX [Concomitant]
     Route: 065
     Dates: start: 20111118, end: 20111118
  20. BACTRIM [Concomitant]
     Route: 065
     Dates: start: 20111117, end: 20111118

REACTIONS (1)
  - RENAL IMPAIRMENT [None]
